FAERS Safety Report 14438734 (Version 4)
Quarter: 2018Q1

REPORT INFORMATION
  Report Type: Spontaneous
  Country: FR (occurrence: FR)
  Receive Date: 20180125
  Receipt Date: 20180312
  Transmission Date: 20180509
  Serious: Yes (Hospitalization)
  Sender: FDA-Public Use
  Company Number: FR-JNJFOC-20180110996

PATIENT
  Age: 45 Year
  Sex: Male
  Weight: 100 kg

DRUGS (4)
  1. STELARA [Suspect]
     Active Substance: USTEKINUMAB
     Indication: PSORIASIS
     Route: 058
     Dates: start: 20170511, end: 20170904
  2. SEROPLEX [Suspect]
     Active Substance: ESCITALOPRAM OXALATE
     Indication: DEPRESSION
     Route: 048
     Dates: start: 201709
  3. CRATAEGUS EXTRACT [Suspect]
     Active Substance: HAWTHORN LEAF WITH FLOWER
     Indication: PRODUCT USED FOR UNKNOWN INDICATION
     Dosage: 3
     Route: 048
  4. STRESAM [Suspect]
     Active Substance: ETIFOXINE
     Indication: DEPRESSION
     Route: 048
     Dates: start: 201709

REACTIONS (5)
  - Asthenia [Recovered/Resolved]
  - Type 2 diabetes mellitus [Not Recovered/Not Resolved]
  - Balanitis candida [Recovered/Resolved]
  - Gastrointestinal candidiasis [Recovered/Resolved]
  - Depression [Recovered/Resolved]

NARRATIVE: CASE EVENT DATE: 20170607
